FAERS Safety Report 8484362-4 (Version None)
Quarter: 2012Q3

REPORT INFORMATION
  Report Type: 
  Country: None (occurrence: None)
  Receive Date: 20120703
  Receipt Date: 20120627
  Transmission Date: 20120928
  Serious: Yes (Hospitalization, Other)
  Sender: FDA-Public Use
  Company Number: PHHY2012BR054258

PATIENT
  Age: 36 Year
  Sex: Male
  Weight: 63 kg

DRUGS (2)
  1. SANDOSTATIN LAR [Suspect]
     Indication: CARCINOID SYNDROME
     Dosage: 20 MG, 1 APPLICATION PER MONTH
     Dates: end: 20120605
  2. SANDOSTATIN LAR [Suspect]
     Indication: NEUROENDOCRINE TUMOUR

REACTIONS (6)
  - FLUSHING [None]
  - DIARRHOEA [None]
  - CARDIAC DISORDER [None]
  - FLUID RETENTION [None]
  - ASTHENIA [None]
  - MALAISE [None]
